FAERS Safety Report 5264063-6 (Version None)
Quarter: 2007Q1

REPORT INFORMATION
  Report Type: 
  Country: None (occurrence: None)
  Receive Date: 20070313
  Receipt Date: 20070306
  Transmission Date: 20070707
  Serious: Yes (Congenital Anomaly)
  Sender: FDA-Public Use
  Company Number: MY-PFIZER INC-2007017884

PATIENT

DRUGS (2)
  1. SERTRALINE [Suspect]
     Dosage: TEXT:UNKNOWN
     Route: 064
  2. LORAZEPAM [Suspect]
     Dosage: TEXT:UNKNOWN
     Route: 064

REACTIONS (3)
  - CLEFT LIP [None]
  - CLEFT PALATE [None]
  - DRUG EXPOSURE DURING PREGNANCY [None]
